FAERS Safety Report 14250294 (Version 1)
Quarter: 2017Q4

REPORT INFORMATION
  Report Type: Spontaneous
  Country: US (occurrence: US)
  Receive Date: 20171205
  Receipt Date: 20171205
  Transmission Date: 20180321
  Serious: No
  Sender: FDA-Public Use
  Company Number: US-TEVA-2017-US-826744

PATIENT
  Sex: Female

DRUGS (2)
  1. NUVIGIL [Suspect]
     Active Substance: ARMODAFINIL
     Indication: SLEEP APNOEA SYNDROME
  2. NUVIGIL [Suspect]
     Active Substance: ARMODAFINIL
     Indication: RESTLESS LEGS SYNDROME
     Dosage: DOSAGE: ONE-HALF TABLET, OR ONE AND ONE-HALF TABLET DAILY
     Dates: start: 201403

REACTIONS (2)
  - Diarrhoea [Recovered/Resolved]
  - Nasopharyngitis [Not Recovered/Not Resolved]

NARRATIVE: CASE EVENT DATE: 20171113
